FAERS Safety Report 5017159-8 (Version None)
Quarter: 2006Q2

REPORT INFORMATION
  Report Type: 
  Country: None (occurrence: None)
  Receive Date: 20060525
  Receipt Date: 20060502
  Transmission Date: 20061013
  Serious: Yes (Other)
  Sender: FDA-Public Use
  Company Number: US200602004077

PATIENT
  Age: 51 Year
  Weight: 72.6 kg

DRUGS (1)
  1. ZYPREXA [Suspect]
     Indication: BIPOLAR DISORDER
     Dosage: ORAL
     Route: 048
     Dates: start: 19980101, end: 19980301

REACTIONS (7)
  - DIABETES MELLITUS NON-INSULIN-DEPENDENT [None]
  - DIABETIC KETOACIDOSIS [None]
  - DRY GANGRENE [None]
  - EMOTIONAL DISTRESS [None]
  - FOOT FRACTURE [None]
  - TOE AMPUTATION [None]
  - WEIGHT INCREASED [None]
